FAERS Safety Report 18433031 (Version 6)
Quarter: 2020Q4

REPORT INFORMATION
  Report Type: Spontaneous
  Country: CA (occurrence: CA)
  Receive Date: 20201027
  Receipt Date: 20201216
  Transmission Date: 20210114
  Serious: Yes (Hospitalization, Other)
  Sender: FDA-Public Use
  Company Number: CA-PFIZER INC-2020180777

PATIENT
  Age: 27 Year
  Sex: Male
  Weight: 64.8 kg

DRUGS (15)
  1. ZIRABEV [Suspect]
     Active Substance: BEVACIZUMAB-BVZR
     Dosage: 10 MG/KG, EVERY 2 WEEKS
     Route: 042
     Dates: start: 20200402
  2. ZIRABEV [Suspect]
     Active Substance: BEVACIZUMAB-BVZR
     Dosage: 10 MG/KG, EVERY 2 WEEKS
     Route: 042
     Dates: start: 20200528
  3. ZIRABEV [Suspect]
     Active Substance: BEVACIZUMAB-BVZR
     Dosage: 650 MG, EVERY 2 WEEKS
     Route: 042
     Dates: start: 20200904
  4. ZIRABEV [Suspect]
     Active Substance: BEVACIZUMAB-BVZR
     Dosage: 650 MG, EVERY 2 WEEKS
     Route: 042
     Dates: start: 20200724
  5. ZIRABEV [Suspect]
     Active Substance: BEVACIZUMAB-BVZR
     Dosage: 650 MG, EVERY 2 WEEKS
     Route: 042
     Dates: start: 20200821
  6. ZIRABEV [Suspect]
     Active Substance: BEVACIZUMAB-BVZR
     Dosage: 650 MG, EVERY 2 WEEKS
     Route: 042
     Dates: start: 20201006
  7. ZIRABEV [Suspect]
     Active Substance: BEVACIZUMAB-BVZR
     Dosage: 650 MG, EVERY 2 WEEKS
     Route: 042
     Dates: start: 20200724
  8. ZIRABEV [Suspect]
     Active Substance: BEVACIZUMAB-BVZR
     Dosage: 650 MG, EVERY 2 WEEKS
     Route: 042
     Dates: start: 20200807
  9. ZIRABEV [Suspect]
     Active Substance: BEVACIZUMAB-BVZR
     Dosage: 10 MG/KG, EVERY 2 WEEKS
     Route: 042
     Dates: start: 20200528
  10. ZIRABEV [Suspect]
     Active Substance: BEVACIZUMAB-BVZR
     Dosage: 10 MG/KG, EVERY 2 WEEKS
     Route: 042
     Dates: start: 20200710
  11. ZIRABEV [Suspect]
     Active Substance: BEVACIZUMAB-BVZR
     Dosage: 650 MG, EVERY 2 WEEKS
     Route: 042
     Dates: start: 20200821
  12. ZIRABEV [Suspect]
     Active Substance: BEVACIZUMAB-BVZR
     Dosage: 650 MG, EVERY 2 WEEKS
     Route: 042
     Dates: start: 20200904
  13. ZIRABEV [Suspect]
     Active Substance: BEVACIZUMAB-BVZR
     Dosage: 650 MG, EVERY 2 WEEKS
     Route: 042
     Dates: start: 20201006, end: 20201006
  14. ELIQUIS [Concomitant]
     Active Substance: APIXABAN
     Dosage: UNK
     Dates: start: 20200527
  15. ZIRABEV [Suspect]
     Active Substance: BEVACIZUMAB-BVZR
     Dosage: 650 MG, EVERY 2 WEEKS
     Route: 042
     Dates: start: 20200807

REACTIONS (29)
  - Wound infection [Recovering/Resolving]
  - Blood albumin decreased [Not Recovered/Not Resolved]
  - Red blood cells urine positive [Unknown]
  - Blood potassium decreased [Unknown]
  - Poor venous access [Unknown]
  - Cerebral disorder [Unknown]
  - Red blood cell count decreased [Not Recovered/Not Resolved]
  - Mean cell haemoglobin concentration increased [Unknown]
  - Lymphocyte count decreased [Unknown]
  - Mean cell volume increased [Unknown]
  - Mean cell haemoglobin increased [Not Recovered/Not Resolved]
  - Haemoglobin decreased [Unknown]
  - Platelet count decreased [Unknown]
  - Malaise [Unknown]
  - Somnolence [Unknown]
  - Neoplasm progression [Not Recovered/Not Resolved]
  - Brain neoplasm [Unknown]
  - Blood ketone body increased [Unknown]
  - Weight increased [Unknown]
  - Haematocrit decreased [Unknown]
  - Mean platelet volume decreased [Not Recovered/Not Resolved]
  - Inappropriate schedule of product administration [Unknown]
  - Fatigue [Unknown]
  - Lymphocyte count decreased [Not Recovered/Not Resolved]
  - Blood test abnormal [Unknown]
  - Urine ketone body present [Unknown]
  - Seizure [Not Recovered/Not Resolved]
  - Monocyte count increased [Unknown]
  - Product dose omission issue [Unknown]

NARRATIVE: CASE EVENT DATE: 20200624
